FAERS Safety Report 8802893 (Version 3)
Quarter: 2013Q2

REPORT INFORMATION
  Report Type: Report from Study
  Country: JP (occurrence: JP)
  Receive Date: 20120924
  Receipt Date: 20130524
  Transmission Date: 20140414
  Serious: Yes (Other)
  Sender: FDA-Public Use
  Company Number: JP-VERTEX PHARMACEUTICAL INC.-2012-021551

PATIENT
  Age: 63 Year
  Sex: Male

DRUGS (11)
  1. VX-950 (TELAPREVIR) [Suspect]
     Indication: CHRONIC HEPATITIS C
     Dosage: 2250 MG, QD
     Route: 048
     Dates: start: 20120803, end: 20120807
  2. REBETOL [Suspect]
     Indication: CHRONIC HEPATITIS C
     Dosage: 800 MG, QD
     Route: 048
     Dates: start: 20120803, end: 20120807
  3. PEGINTRON [Suspect]
     Indication: CHRONIC HEPATITIS C
     Dosage: 1.5 ?G/KG, QW
     Route: 058
     Dates: start: 20120803, end: 20120803
  4. URSO [Concomitant]
     Dosage: 600 MG, QD
     Route: 048
  5. FASTIC [Concomitant]
     Dosage: 270 MG, QD
     Route: 048
  6. BASEN [Concomitant]
     Dosage: 0.6 MG, QD
     Route: 048
  7. DIOVAN [Concomitant]
     Dosage: 160 MG, QD
     Route: 048
  8. CONIEL [Concomitant]
     Dosage: 8 MG, QD
     Route: 048
  9. MAINTATE [Concomitant]
     Dosage: 5 MG, QD
     Route: 048
  10. ADOAIR [Concomitant]
     Dosage: 500 ?G, QD
     Route: 055
  11. URIEF [Concomitant]
     Dosage: 8 MG, QD
     Route: 048

REACTIONS (1)
  - Renal failure acute [Recovered/Resolved]
